FAERS Safety Report 5630418-0 (Version None)
Quarter: 2008Q1

REPORT INFORMATION
  Report Type: 
  Country: None (occurrence: None)
  Receive Date: 20080219
  Receipt Date: 20080219
  Transmission Date: 20080703
  Serious: No
  Sender: FDA-Public Use
  Company Number: None

PATIENT
  Sex: Female
  Weight: 89 kg

DRUGS (3)
  1. HEPARIN [Suspect]
     Dosage: 30,000 UNITS IV BOLUS JUST PRIOR TO LOWER BLOOD PRESSURE; 5000 UNITS IV BOLUS
     Route: 040
     Dates: start: 20080215
  2. HEPARIN [Suspect]
  3. HEPARIN [Suspect]

REACTIONS (1)
  - PROCEDURAL HYPOTENSION [None]
